FAERS Safety Report 12648938 (Version 1)
Quarter: 2016Q3

REPORT INFORMATION
  Report Type: Spontaneous
  Country: CA (occurrence: CA)
  Receive Date: 20160812
  Receipt Date: 20160812
  Transmission Date: 20161109
  Serious: No
  Sender: FDA-Public Use
  Company Number: CA-DUSA PHARMACEUTICALS, INC.-1056257

PATIENT
  Age: 82 Year
  Sex: Male

DRUGS (1)
  1. LEVULAN KERASTICK [Suspect]
     Active Substance: AMINOLEVULINIC ACID HYDROCHLORIDE
     Indication: ACTINIC KERATOSIS
     Route: 061
     Dates: start: 20160104, end: 20160104

REACTIONS (2)
  - Off label use [None]
  - Drug ineffective [Recovered/Resolved]
